FAERS Safety Report 6066050-7 (Version None)
Quarter: 2009Q1

REPORT INFORMATION
  Report Type: 
  Country: None (occurrence: None)
  Receive Date: 20090130
  Receipt Date: 20090119
  Transmission Date: 20090719
  Serious: Yes (Hospitalization)
  Sender: FDA-Public Use
  Company Number: 02100-JPN-07-0314

PATIENT
  Age: 80 Year
  Sex: Female

DRUGS (11)
  1. PLETAL [Suspect]
     Indication: CEREBRAL ARTERY STENOSIS
     Dosage: 100 MG, BID ORAL
     Route: 048
     Dates: start: 20070404, end: 20071030
  2. PLAVIX [Suspect]
     Indication: CEREBRAL ARTERY STENOSIS
     Dosage: 75 MG, QD ORAL
     Route: 048
     Dates: start: 20070404, end: 20071030
  3. ASPIRIN (ENTERIC COATED) (ASPIRIN (ENTERIC COATED)) UNKNOWN [Concomitant]
  4. MAGNESIUM OXIDE (MAGNESIUM OXIDE) UNKNOWN [Concomitant]
  5. METFORMIN HYDROCHLORIDE [Concomitant]
  6. ESCITALOPRAM OXALATE (ESCITALOPRAM OXALATE) UNKNOWN [Concomitant]
  7. IRBESARTAN (IRBESARTAN) UNKNOWN [Concomitant]
  8. CALCIUM POLYCARBOPHIL (CALCIUM POLYCARBOPHIL) UNKNOWN [Concomitant]
  9. ANYTAL (MADE BY ANGOOK) (ANYTAL (MADE BY ANGOOK)) TABLET [Concomitant]
  10. KETOPROFEN (KETOPROFEN) UNKNOWN [Concomitant]
  11. AMLODIPINE MALEATE (AMLODIPINE MALEATE) UNKNOWN [Concomitant]

REACTIONS (4)
  - ABNORMAL BEHAVIOUR [None]
  - HYPOPHAGIA [None]
  - MEMORY IMPAIRMENT [None]
  - POLLAKIURIA [None]
